FAERS Safety Report 5931409-2 (Version None)
Quarter: 2008Q4

REPORT INFORMATION
  Report Type: 
  Country: None (occurrence: None)
  Receive Date: 20081024
  Receipt Date: 20081024
  Transmission Date: 20090506
  Serious: Yes (Life-Threatening)
  Sender: FDA-Public Use
  Company Number: None

PATIENT
  Age: 31 Year
  Sex: Male
  Weight: 81.6475 kg

DRUGS (1)
  1. PREDNISONE TAB [Suspect]
     Indication: RENAL FAILURE

REACTIONS (2)
  - COMA [None]
  - RENAL FAILURE [None]
